FAERS Safety Report 12284952 (Version 2)
Quarter: 2016Q2

REPORT INFORMATION
  Report Type: Report from Study
  Country: US (occurrence: US)
  Receive Date: 20160420
  Receipt Date: 20160425
  Transmission Date: 20160815
  Serious: Yes (Hospitalization)
  Sender: FDA-Public Use
  Company Number: US-ROCHE-1708864

PATIENT
  Sex: Male
  Weight: 104.87 kg

DRUGS (15)
  1. NATEGLINIDE. [Concomitant]
     Active Substance: NATEGLINIDE
     Route: 048
  2. ERIVEDGE [Suspect]
     Active Substance: VISMODEGIB
     Indication: SKIN CANCER
     Route: 048
     Dates: start: 201601
  3. ERIVEDGE [Suspect]
     Active Substance: VISMODEGIB
     Indication: BASAL CELL CARCINOMA
     Route: 048
     Dates: start: 20151215, end: 20160322
  4. LOTENSIN (UNITED STATES) [Concomitant]
     Route: 048
  5. BENAZEPRIL HCT [Concomitant]
     Dosage: 20/12.5 MG
     Route: 048
     Dates: start: 2010
  6. PLAVIX [Concomitant]
     Active Substance: CLOPIDOGREL BISULFATE
     Route: 048
  7. ZETIA [Concomitant]
     Active Substance: EZETIMIBE
  8. METOPROLOL. [Concomitant]
     Active Substance: METOPROLOL
     Route: 048
  9. VERAPAMIL [Concomitant]
     Active Substance: VERAPAMIL HYDROCHLORIDE
     Route: 048
  10. METFORMIN [Concomitant]
     Active Substance: METFORMIN HYDROCHLORIDE
     Route: 048
  11. HUMULIN 70/30 [Concomitant]
     Active Substance: INSULIN HUMAN
     Indication: DIABETES MELLITUS
     Route: 058
     Dates: start: 2006
  12. ATORVASTATIN [Concomitant]
     Active Substance: ATORVASTATIN
     Route: 048
  13. AMLODIPINE [Concomitant]
     Active Substance: AMLODIPINE BESYLATE
     Route: 048
  14. LEVOTHYROXINE. [Concomitant]
     Active Substance: LEVOTHYROXINE
     Route: 048
  15. PRIMIDONE. [Concomitant]
     Active Substance: PRIMIDONE
     Route: 048

REACTIONS (4)
  - Dizziness [Recovering/Resolving]
  - Ill-defined disorder [Recovered/Resolved]
  - Muscle spasms [Recovered/Resolved]
  - Fall [Unknown]
